FAERS Safety Report 24976362 (Version 1)
Quarter: 2025Q1

REPORT INFORMATION
  Report Type: Spontaneous
  Country: CN (occurrence: CN)
  Receive Date: 20250217
  Receipt Date: 20250217
  Transmission Date: 20250408
  Serious: Yes (Hospitalization)
  Sender: ACCORD
  Company Number: CN-Accord-469815

PATIENT
  Age: 24 Year
  Sex: Male
  Weight: 52 kg

DRUGS (9)
  1. CLOZAPINE [Suspect]
     Active Substance: CLOZAPINE
     Indication: Schizophrenia
     Dosage: AT 1ST HOSPITALISATION
     Dates: start: 20141008, end: 20141209
  2. CHLORPROMAZINE [Suspect]
     Active Substance: CHLORPROMAZINE
     Indication: Schizophrenia
     Dosage: 9 TABLETS/DAY
  3. CLOZAPINE [Suspect]
     Active Substance: CLOZAPINE
     Indication: Schizophrenia
     Dosage: 2ND HOSPITALISATION
     Dates: start: 20150303, end: 20150429
  4. CLOZAPINE [Suspect]
     Active Substance: CLOZAPINE
     Indication: Schizophrenia
     Dosage: 3RD HOSPITALISATION
     Dates: start: 20150625, end: 20150704
  5. CLOZAPINE [Suspect]
     Active Substance: CLOZAPINE
     Indication: Schizophrenia
     Dosage: 4TH HOSPITALISATION
     Dates: start: 20160713, end: 20160816
  6. CLOZAPINE [Suspect]
     Active Substance: CLOZAPINE
     Indication: Schizophrenia
     Dosage: 5TH HOSPITALISATION
     Dates: start: 20180723, end: 20180821
  7. CLOZAPINE [Suspect]
     Active Substance: CLOZAPINE
     Indication: Schizophrenia
     Dosage: 32 TABLETS/DAY
  8. CLOZAPINE [Suspect]
     Active Substance: CLOZAPINE
     Indication: Schizophrenia
     Dosage: 107 TABLETS/DAY FOR MORE THAN HALF A MONTH)
  9. CHLORPROMAZINE [Suspect]
     Active Substance: CHLORPROMAZINE
     Indication: Schizophrenia
     Dosage: 40 TABLETS/DAY FOR MORE THAN HALF A MONTH/CHLORPROMAZINE TO 7-40 TABLETS (50MG/TABLET).

REACTIONS (11)
  - Seizure [Recovered/Resolved]
  - Loss of consciousness [Recovered/Resolved]
  - Lethargy [Recovered/Resolved]
  - Psychomotor retardation [Recovering/Resolving]
  - Mental impairment [Recovering/Resolving]
  - Drooling [Recovering/Resolving]
  - Leukocytosis [Recovering/Resolving]
  - Sinus tachycardia [Recovering/Resolving]
  - Intentional overdose [Recovering/Resolving]
  - Toxicity to various agents [Recovering/Resolving]
  - Salivary hypersecretion [Unknown]

NARRATIVE: CASE EVENT DATE: 20200101
